FAERS Safety Report 7517044-3 (Version None)
Quarter: 2011Q2

REPORT INFORMATION
  Report Type: 
  Country: None (occurrence: None)
  Receive Date: 20110601
  Receipt Date: 20110518
  Transmission Date: 20111010
  Serious: Yes (Hospitalization, Other)
  Sender: FDA-Public Use
  Company Number: AT-JNJFOC-20110202219

PATIENT
  Sex: Male
  Weight: 110 kg

DRUGS (9)
  1. ASPIRIN [Concomitant]
     Indication: CEREBROVASCULAR ACCIDENT
     Route: 048
     Dates: start: 20081001
  2. LISINOPRIL [Concomitant]
     Indication: HYPERTENSION
     Route: 048
  3. MESALAMINE [Concomitant]
     Indication: COLITIS ULCERATIVE
     Route: 054
  4. AZATHIOPRINE [Suspect]
     Indication: COLITIS ULCERATIVE
     Route: 048
     Dates: start: 20080927
  5. GLIMEPIRIDE [Concomitant]
     Indication: DIABETES MELLITUS
  6. REMICADE [Suspect]
     Route: 042
     Dates: start: 20081201
  7. AMARYL [Concomitant]
     Indication: DIABETES MELLITUS
     Route: 048
  8. REMICADE [Suspect]
     Indication: COLITIS ULCERATIVE
     Route: 042
     Dates: end: 20100325
  9. METFORMIN HCL [Concomitant]
     Indication: DIABETES MELLITUS

REACTIONS (2)
  - RENAL CELL CARCINOMA [None]
  - RENAL NEOPLASM [None]
